FAERS Safety Report 14686659 (Version 1)
Quarter: 2018Q1

REPORT INFORMATION
  Report Type: Spontaneous
  Country: GB (occurrence: GB)
  Receive Date: 20180327
  Receipt Date: 20180327
  Transmission Date: 20180509
  Serious: Yes (Other)
  Sender: FDA-Public Use
  Company Number: GB-AVADEL SPECIALTY PHARMACEUTICALS, LLC-2018AVA00021

PATIENT
  Age: 43 Year
  Sex: Male

DRUGS (2)
  1. HYDROCORTISONE. [Concomitant]
     Active Substance: HYDROCORTISONE
     Indication: CORTISOL DECREASED
     Route: 065
  2. DESMOPRESSIN ACETATE. [Suspect]
     Active Substance: DESMOPRESSIN ACETATE
     Indication: POLYURIA
     Route: 045

REACTIONS (3)
  - Hypercorticoidism [Unknown]
  - Macular detachment [Unknown]
  - Chorioretinopathy [Unknown]
